FAERS Safety Report 10338308 (Version 1)
Quarter: 2014Q3

REPORT INFORMATION
  Report Type: Spontaneous
  Country: US (occurrence: US)
  Receive Date: 20140724
  Receipt Date: 20140724
  Transmission Date: 20150326
  Serious: Yes (Death, Other)
  Sender: FDA-Public Use
  Company Number: US-ASTRAZENECA-2014SE52894

PATIENT
  Age: 78 Year
  Sex: Female

DRUGS (5)
  1. SYMBICORT [Suspect]
     Active Substance: BUDESONIDE\FORMOTEROL FUMARATE DIHYDRATE
     Indication: CHRONIC OBSTRUCTIVE PULMONARY DISEASE
     Route: 055
     Dates: start: 20140501
  2. ATIVAN [Concomitant]
     Active Substance: LORAZEPAM
     Dosage: EVERY 2 HOURS
  3. SYMBICORT [Suspect]
     Active Substance: BUDESONIDE\FORMOTEROL FUMARATE DIHYDRATE
     Indication: ASTHMA
     Route: 055
     Dates: start: 20140501
  4. MORPHINE [Suspect]
     Active Substance: MORPHINE
     Dosage: EVERY 2 HOURS
     Route: 065
  5. INSULIN [Suspect]
     Active Substance: INSULIN NOS
     Route: 065

REACTIONS (6)
  - Urticaria [Unknown]
  - Overdose [Fatal]
  - Cardiac arrest [Fatal]
  - Rash [Unknown]
  - Somnolence [Fatal]
  - Fall [Unknown]

NARRATIVE: CASE EVENT DATE: 20140501
